FAERS Safety Report 7148491-X (Version None)
Quarter: 2010Q4

REPORT INFORMATION
  Report Type: 
  Country: None (occurrence: None)
  Receive Date: 20101209
  Receipt Date: 20101202
  Transmission Date: 20110411
  Serious: Yes (Life-Threatening, Hospitalization, Disabling, Other)
  Sender: FDA-Public Use
  Company Number: DK-ELI_LILLY_AND_COMPANY-DK201012001157

PATIENT
  Sex: Female

DRUGS (2)
  1. ALIMTA [Suspect]
     Indication: LUNG NEOPLASM MALIGNANT
     Dosage: 500 MG,
     Route: 042
     Dates: start: 20100824, end: 20101026
  2. PINEX [Concomitant]
     Dosage: 1000 MG, UNK
     Route: 048

REACTIONS (6)
  - BLOOD CREATININE INCREASED [None]
  - BONE MARROW DISORDER [None]
  - NAUSEA [None]
  - RENAL IMPAIRMENT [None]
  - VOMITING [None]
  - WEIGHT DECREASED [None]
